FAERS Safety Report 23504351 (Version 2)
Quarter: 2024Q1

REPORT INFORMATION
  Report Type: Report from Study
  Country: US (occurrence: US)
  Receive Date: 20240209
  Receipt Date: 20240227
  Transmission Date: 20240410
  Serious: Yes (Other)
  Sender: FDA-Public Use
  Company Number: US-UCBSA-2023025535

PATIENT
  Age: 21 Year
  Sex: Male

DRUGS (3)
  1. FINTEPLA [Suspect]
     Active Substance: FENFLURAMINE
     Indication: Lennox-Gastaut syndrome
     Dosage: 5.5 MILLILITER, 2X/DAY (BID)
     Dates: start: 20220621, end: 202305
  2. FINTEPLA [Suspect]
     Active Substance: FENFLURAMINE
     Dosage: 6.5 MILLILITER, 2X/DAY (BID)
     Dates: start: 202305
  3. FINTEPLA [Suspect]
     Active Substance: FENFLURAMINE
     Dosage: 6.5 MILLILITER, 2X/DAY (BID)

REACTIONS (3)
  - Seizure [Not Recovered/Not Resolved]
  - Agitation [Not Recovered/Not Resolved]
  - Off label use [Unknown]

NARRATIVE: CASE EVENT DATE: 20230501
